FAERS Safety Report 6240962-3 (Version None)
Quarter: 2009Q2

REPORT INFORMATION
  Report Type: 
  Country: None (occurrence: None)
  Receive Date: 20090623
  Receipt Date: 20090615
  Transmission Date: 20091009
  Serious: Yes (Hospitalization)
  Sender: FDA-Public Use
  Company Number: FR-ASTRAZENECA-2009CG01244

PATIENT
  Age: 25618 Day
  Sex: Female
  Weight: 58 kg

DRUGS (15)
  1. NEXIUM [Suspect]
     Route: 048
     Dates: start: 20090216, end: 20090430
  2. ALIMTA [Suspect]
     Route: 042
     Dates: start: 20090301, end: 20090505
  3. AVASTIN [Suspect]
     Route: 042
     Dates: start: 20090414, end: 20090505
  4. IXPRIM [Suspect]
     Route: 048
     Dates: start: 20090302, end: 20090407
  5. MOPRAL [Concomitant]
     Route: 048
     Dates: start: 20090216, end: 20090430
  6. TAHOR [Concomitant]
  7. ALDACTAZINE [Concomitant]
  8. ADALAT [Concomitant]
  9. XYZAL [Concomitant]
  10. CIRKAN [Concomitant]
  11. PAROXETINE HCL [Concomitant]
     Route: 048
  12. BROMAZEPAM [Concomitant]
  13. FRAXODI [Concomitant]
  14. DIFFU K [Concomitant]
  15. CACIT VITAMINE D3 [Concomitant]

REACTIONS (3)
  - GAMMA-GLUTAMYLTRANSFERASE INCREASED [None]
  - LIVER INJURY [None]
  - TRANSAMINASES INCREASED [None]
